FAERS Safety Report 16149083 (Version 1)
Quarter: 2019Q2

REPORT INFORMATION
  Report Type: Spontaneous
  Country: US (occurrence: US)
  Receive Date: 20190402
  Receipt Date: 20190402
  Transmission Date: 20190711
  Serious: No
  Sender: FDA-Public Use
  Company Number: US-ARBOR PHARMACEUTICALS, LLC-US-2018ARB000726

PATIENT

DRUGS (2)
  1. SKLICE [Suspect]
     Active Substance: IVERMECTIN
     Indication: LICE INFESTATION
     Dosage: UNK, SINGLE
     Route: 061
     Dates: start: 20180619, end: 20180619
  2. SKLICE [Suspect]
     Active Substance: IVERMECTIN
     Dosage: UNK, SINGLE
     Dates: start: 20180620, end: 20180620

REACTIONS (1)
  - Formication [Unknown]

NARRATIVE: CASE EVENT DATE: 20180620
